FAERS Safety Report 24214296 (Version 1)
Quarter: 2024Q3

REPORT INFORMATION
  Report Type: Spontaneous
  Country: FR (occurrence: None)
  Receive Date: 20240815
  Receipt Date: 20240815
  Transmission Date: 20241017
  Serious: Yes (Hospitalization)
  Sender: ASTRAZENECA
  Company Number: 2024A186342

PATIENT
  Age: 54 Year
  Sex: Female

DRUGS (13)
  1. QUETIAPINE [Suspect]
     Active Substance: QUETIAPINE
     Indication: Schizophrenia
     Dosage: IN THE EVENING
     Dates: start: 201801, end: 20240704
  2. QUETIAPINE [Suspect]
     Active Substance: QUETIAPINE
     Indication: Schizophrenia
     Dates: start: 20240705, end: 20240709
  3. QUETIAPINE [Suspect]
     Active Substance: QUETIAPINE
     Indication: Schizophrenia
     Dosage: 300.0MG UNKNOWN
     Dates: start: 20240718
  4. CLOZAPINE [Suspect]
     Active Substance: CLOZAPINE
     Indication: Schizophrenia
     Dates: start: 20240521, end: 20240720
  5. VALPROATE SODIUM [Suspect]
     Active Substance: VALPROATE SODIUM
     Indication: Affective disorder
     Dates: start: 20240214
  6. VALPROATE SODIUM [Suspect]
     Active Substance: VALPROATE SODIUM
     Indication: Affective disorder
     Dosage: 500.0MG UNKNOWN
     Dates: start: 201406
  7. VALPROATE SODIUM [Suspect]
     Active Substance: VALPROATE SODIUM
     Indication: Affective disorder
     Dosage: 500.0MG UNKNOWN
     Dates: start: 20240715
  8. OXAZEPAM [Suspect]
     Active Substance: OXAZEPAM
     Dosage: 125.0MG UNKNOWN
  9. OXAZEPAM [Suspect]
     Active Substance: OXAZEPAM
     Dosage: 75.0MG UNKNOWN
     Dates: start: 20240718
  10. TRIMEPRAZINE [Suspect]
     Active Substance: TRIMEPRAZINE
  11. TRIMEPRAZINE [Suspect]
     Active Substance: TRIMEPRAZINE
  12. PIPOTIAZINE [Suspect]
     Active Substance: PIPOTIAZINE
  13. PIPOTIAZINE [Suspect]
     Active Substance: PIPOTIAZINE
     Dates: start: 202407

REACTIONS (4)
  - Hepatitis acute [Recovering/Resolving]
  - COVID-19 [Unknown]
  - Hypotonia [Recovered/Resolved]
  - Fall [Recovered/Resolved]

NARRATIVE: CASE EVENT DATE: 20240607
